FAERS Safety Report 25789540 (Version 2)
Quarter: 2025Q3

REPORT INFORMATION
  Report Type: Spontaneous
  Country: CA (occurrence: CA)
  Receive Date: 20250911
  Receipt Date: 20250926
  Transmission Date: 20251020
  Serious: Yes (Hospitalization, Other)
  Sender: ACCORD
  Company Number: None

PATIENT
  Age: 68 Year
  Sex: Female

DRUGS (8)
  1. METHOTREXATE [Suspect]
     Active Substance: METHOTREXATE
     Indication: Sjogren^s syndrome
     Route: 013
  2. ADALIMUMAB [Suspect]
     Active Substance: ADALIMUMAB
     Indication: Sjogren^s syndrome
     Route: 058
  3. HYRIMOZ [Suspect]
     Active Substance: ADALIMUMAB-ADAZ
     Indication: Sjogren^s syndrome
  4. PEDIAPRED [Suspect]
     Active Substance: PREDNISOLONE SODIUM PHOSPHATE
     Indication: Hypersensitivity pneumonitis
  5. DOXYCYCLINE [Concomitant]
     Active Substance: DOXYCYCLINE
     Indication: Product used for unknown indication
     Route: 048
  6. METHYLPREDNISOLONE [Concomitant]
     Active Substance: METHYLPREDNISOLONE
     Indication: Product used for unknown indication
     Route: 042
  7. PREDNISONE [Concomitant]
     Active Substance: PREDNISONE
     Indication: Product used for unknown indication
     Route: 048
  8. PIPERACILLIN SODIUM\SULBACTAM SODIUM [Concomitant]
     Active Substance: PIPERACILLIN SODIUM\SULBACTAM SODIUM
     Indication: Product used for unknown indication

REACTIONS (19)
  - Histoplasmosis disseminated [Recovering/Resolving]
  - Acute pulmonary histoplasmosis [Recovering/Resolving]
  - Histoplasmosis [Unknown]
  - Nausea [Unknown]
  - Night sweats [Unknown]
  - Pyrexia [Unknown]
  - Vomiting [Unknown]
  - Chills [Unknown]
  - Cough [Unknown]
  - Headache [Unknown]
  - Herpes simplex [Unknown]
  - Hypersensitivity pneumonitis [Recovering/Resolving]
  - Weight decreased [Unknown]
  - Cholestasis [Recovering/Resolving]
  - Granulomatous liver disease [Recovering/Resolving]
  - Hypertransaminasaemia [Recovering/Resolving]
  - Respiratory failure [Recovering/Resolving]
  - Product use in unapproved indication [Recovering/Resolving]
  - Off label use [Unknown]
